FAERS Safety Report 4691936-5 (Version None)
Quarter: 2005Q2

REPORT INFORMATION
  Report Type: 
  Country: None (occurrence: None)
  Receive Date: 20050614
  Receipt Date: 20050610
  Transmission Date: 20051028
  Serious: Yes (Disabling)
  Sender: FDA-Public Use
  Company Number: HQ7693226OCT2001

PATIENT
  Age: 30 Year
  Sex: Female
  Weight: 71.73 kg

DRUGS (2)
  1. DIMETAPP [Suspect]
     Indication: NASOPHARYNGITIS
     Dosage: 1 TABLET 3X PER 1 DAY, ORAL
     Route: 048
     Dates: start: 20010301, end: 20010502
  2. ROBITUSSIN (GUAIFENESIN) [Concomitant]

REACTIONS (4)
  - BLINDNESS [None]
  - CEREBROVASCULAR ACCIDENT [None]
  - CONVULSION [None]
  - OVERDOSE [None]
